FAERS Safety Report 4702700-2 (Version None)
Quarter: 2005Q2

REPORT INFORMATION
  Report Type: 
  Country: None (occurrence: None)
  Receive Date: 20050624
  Receipt Date: 20050420
  Transmission Date: 20051028
  Serious: No
  Sender: FDA-Public Use
  Company Number: 2005BI008418

PATIENT
  Age: 46 Year
  Sex: Female

DRUGS (1)
  1. NATALIZUMAB [Suspect]
     Indication: MULTIPLE SCLEROSIS
     Dosage: 300 MG;QM;IV
     Route: 042
     Dates: start: 20050201, end: 20050201

REACTIONS (2)
  - DEPRESSION [None]
  - MULTIPLE SCLEROSIS [None]
